FAERS Safety Report 4602348-4 (Version None)
Quarter: 2005Q2

REPORT INFORMATION
  Report Type: 
  Country: None (occurrence: None)
  Receive Date: 20050223
  Receipt Date: 20041216
  Transmission Date: 20051028
  Serious: No
  Sender: FDA-Public Use
  Company Number: 211199

PATIENT
  Age: 54 Year
  Sex: Female
  Weight: 120.2 kg

DRUGS (2)
  1. RAPTIVA [Suspect]
     Indication: PSORIASIS
     Dosage: 0.8 ML, SINGLE, SUBCUTANEOUS; 1.2 ML,1/WEEK, SUBCUTANIOUS
     Route: 058
     Dates: start: 20040212, end: 20040212
  2. RAPTIVA [Suspect]
     Indication: PSORIASIS
     Dosage: 0.8 ML, SINGLE, SUBCUTANEOUS; 1.2 ML,1/WEEK, SUBCUTANIOUS
     Route: 058
     Dates: end: 20041209

REACTIONS (1)
  - LIVER FUNCTION TEST ABNORMAL [None]
